FAERS Safety Report 5514157-2 (Version None)
Quarter: 2007Q4

REPORT INFORMATION
  Report Type: 
  Country: None (occurrence: None)
  Receive Date: 20071113
  Receipt Date: 20071102
  Transmission Date: 20080405
  Serious: Yes (Other)
  Sender: FDA-Public Use
  Company Number: US-JNJFOC-20071101529

PATIENT
  Age: 63 Year
  Sex: Female

DRUGS (1)
  1. LEVAQUIN [Suspect]
     Indication: KIDNEY INFECTION
     Route: 048

REACTIONS (3)
  - DEPRESSION [None]
  - INCOHERENT [None]
  - INSOMNIA [None]
